FAERS Safety Report 8968578 (Version 1)
Quarter: 2012Q4

REPORT INFORMATION
  Report Type: 
  Country: AU (occurrence: AU)
  Receive Date: 20121217
  Receipt Date: 20121217
  Transmission Date: 20130627
  Serious: Yes (Other)
  Sender: FDA-Public Use
  Company Number: AU-BAYER-2012-130949

PATIENT
  Age: 24 Year
  Sex: Female

DRUGS (2)
  1. CANESTEN CLOTRIMAZOLE THRUSH TREATMENT [Suspect]
     Indication: THRUSH
     Dosage: UNK
     Route: 067
     Dates: start: 20121211
  2. MIRENA [Suspect]
     Dosage: UNK
     Dates: start: 2012

REACTIONS (1)
  - Vaginal haemorrhage [Recovered/Resolved]
